FAERS Safety Report 16313902 (Version 2)
Quarter: 2019Q2

REPORT INFORMATION
  Report Type: Spontaneous
  Country: US (occurrence: US)
  Receive Date: 20190515
  Receipt Date: 20190516
  Transmission Date: 20190711
  Serious: No
  Sender: FDA-Public Use
  Company Number: US-PFIZER INC-2019200486

PATIENT
  Age: 43 Year
  Sex: Female
  Weight: 81.63 kg

DRUGS (3)
  1. FLUCONAZOLE. [Suspect]
     Active Substance: FLUCONAZOLE
     Dosage: 150 MG, UNK
     Route: 048
  2. FLUCONAZOLE. [Suspect]
     Active Substance: FLUCONAZOLE
     Indication: INFECTION
     Dosage: 150 MG, SINGLE
     Dates: start: 20190428
  3. FLUCONAZOLE. [Suspect]
     Active Substance: FLUCONAZOLE
     Dosage: 150 MG, UNK (2ND DOSE 72 HOURS LATER)
     Dates: start: 20190501

REACTIONS (7)
  - Off label use [Unknown]
  - Constipation [Unknown]
  - Pain [Unknown]
  - Infection [Unknown]
  - Abdominal pain [Recovering/Resolving]
  - Therapeutic product effect incomplete [Unknown]
  - Intentional product misuse [Unknown]

NARRATIVE: CASE EVENT DATE: 20190428
